FAERS Safety Report 17533491 (Version 1)
Quarter: 2020Q1

REPORT INFORMATION
  Report Type: Spontaneous
  Country: US (occurrence: US)
  Receive Date: 20200312
  Receipt Date: 20200312
  Transmission Date: 20200409
  Serious: No
  Sender: FDA-Public Use
  Company Number: US-VERTEX PHARMACEUTICALS-2020-005056

PATIENT
  Sex: Female

DRUGS (1)
  1. KALYDECO [Suspect]
     Active Substance: IVACAFTOR
     Indication: CYSTIC FIBROSIS
     Dosage: 25 MG, BID
     Route: 048

REACTIONS (4)
  - Abdominal pain upper [Recovering/Resolving]
  - Productive cough [Recovering/Resolving]
  - Eating disorder [Recovering/Resolving]
  - Wheezing [Recovering/Resolving]
